FAERS Safety Report 16654160 (Version 3)
Quarter: 2020Q1

REPORT INFORMATION
  Report Type: Spontaneous
  Country: US (occurrence: US)
  Receive Date: 20190731
  Receipt Date: 20200106
  Transmission Date: 20200409
  Serious: No
  Sender: FDA-Public Use
  Company Number: US-SA-2019SA204414

PATIENT
  Age: 65 Year
  Sex: Male

DRUGS (7)
  1. FUROSEMIDE. [Concomitant]
     Active Substance: FUROSEMIDE
  2. ATORVASTATIN [Concomitant]
     Active Substance: ATORVASTATIN
  3. IMIQUIMOD. [Concomitant]
     Active Substance: IMIQUIMOD
  4. DUPIXENT [Suspect]
     Active Substance: DUPILUMAB
     Indication: DERMATITIS ATOPIC
     Dosage: 300 MG, QOW
     Route: 058
     Dates: start: 20190218
  5. SPIRONOLACTON [Concomitant]
     Active Substance: SPIRONOLACTONE
  6. DILTIAZEM. [Concomitant]
     Active Substance: DILTIAZEM
  7. POTASSIUM CHLORIDE. [Concomitant]
     Active Substance: POTASSIUM CHLORIDE

REACTIONS (3)
  - Pain [Recovered/Resolved]
  - Product dose omission [Unknown]
  - Dermatitis atopic [Recovered/Resolved]
